FAERS Safety Report 4487371-5 (Version None)
Quarter: 2004Q4

REPORT INFORMATION
  Report Type: 
  Country: None (occurrence: None)
  Receive Date: 20041027
  Receipt Date: 20041021
  Transmission Date: 20050328
  Serious: Yes (Disabling)
  Sender: FDA-Public Use
  Company Number: GB-MERCK-0410GBR00256

PATIENT
  Age: 73 Year
  Sex: Female
  Weight: 66 kg

DRUGS (6)
  1. VIOXX [Suspect]
     Indication: OSTEOARTHRITIS
     Route: 048
     Dates: start: 20010201, end: 20041001
  2. ATORVASTATIN CALCIUM [Concomitant]
     Indication: MYOCARDIAL ISCHAEMIA
     Route: 048
  3. BENDROFLUMETHIAZIDE [Concomitant]
     Indication: HYPERTENSION
     Route: 048
  4. LANSOPRAZOLE [Concomitant]
     Indication: DYSPEPSIA
     Route: 048
  5. ISOSORBIDE MONONITRATE [Concomitant]
     Indication: PAIN
     Route: 048
  6. ASPIRIN [Concomitant]
     Indication: MYOCARDIAL ISCHAEMIA
     Route: 048

REACTIONS (1)
  - CEREBROVASCULAR ACCIDENT [None]
